FAERS Safety Report 5159012-5 (Version None)
Quarter: 2006Q4

REPORT INFORMATION
  Report Type: 
  Country: None (occurrence: None)
  Receive Date: 20061117
  Receipt Date: 20061109
  Transmission Date: 20070319
  Serious: Yes (Life-Threatening, Hospitalization)
  Sender: FDA-Public Use
  Company Number: GXKR2006GB07230

PATIENT
  Age: 74 Year
  Sex: Male

DRUGS (5)
  1. OMEPRAZOLE [Suspect]
     Indication: PROPHYLAXIS AGAINST GASTROINTESTINAL ULCER
     Dosage: 20 MG; ORAL
     Route: 048
     Dates: start: 20060728
  2. FERROGRAD (FERROUS SULFATE EXISICCATED) [Concomitant]
  3. FINASTERIDE [Concomitant]
  4. FLOMAXTRA XL (TAMSULOSIN HYDROCHLORIDE) [Concomitant]
  5. INDAPAMIDE [Concomitant]

REACTIONS (3)
  - HAEMODIALYSIS [None]
  - NEPHRITIS INTERSTITIAL [None]
  - RENAL FAILURE ACUTE [None]
